FAERS Safety Report 4746203-8 (Version None)
Quarter: 2005Q3

REPORT INFORMATION
  Report Type: 
  Country: None (occurrence: None)
  Receive Date: 20050816
  Receipt Date: 20050513
  Transmission Date: 20060218
  Serious: Yes (Hospitalization, Disabling)
  Sender: FDA-Public Use
  Company Number: US-MERCK-0505USA01954

PATIENT
  Age: 67 Year
  Sex: Female
  Weight: 73 kg

DRUGS (20)
  1. VIOXX [Suspect]
     Indication: OSTEOARTHRITIS
     Route: 048
     Dates: start: 19991101, end: 20020401
  2. VIOXX [Suspect]
     Route: 048
     Dates: end: 20040101
  3. VIOXX [Suspect]
     Indication: BACK PAIN
     Route: 048
     Dates: start: 19991101, end: 20020401
  4. VIOXX [Suspect]
     Route: 048
     Dates: end: 20040101
  5. ALTACE [Concomitant]
     Indication: HYPERTENSION
     Route: 065
     Dates: start: 20010101, end: 20030101
  6. DETROL LA [Concomitant]
     Indication: HYPERTONIC BLADDER
     Route: 065
  7. NORVASC [Concomitant]
     Indication: HYPERTENSION
     Route: 065
     Dates: start: 20020101, end: 20030101
  8. NORVASC [Concomitant]
     Indication: CHEST PAIN
     Route: 065
     Dates: start: 20020101, end: 20030101
  9. PAXIL [Concomitant]
     Route: 065
  10. NASONEX [Concomitant]
     Indication: HYPERSENSITIVITY
     Route: 065
  11. SINGULAIR [Concomitant]
     Indication: HYPERSENSITIVITY
     Route: 048
  12. ATENOLOL [Concomitant]
     Route: 065
  13. PREMARIN [Concomitant]
     Indication: HORMONE REPLACEMENT THERAPY
     Route: 065
     Dates: start: 20040301, end: 20040401
  14. ENDOCET [Concomitant]
     Route: 065
  15. DIOVAN [Concomitant]
     Indication: HYPERTENSION
     Route: 065
     Dates: start: 20000101
  16. HYDRODIURIL [Concomitant]
     Route: 048
     Dates: start: 20000101
  17. NITROQUICK [Concomitant]
     Route: 065
     Dates: start: 20020101
  18. ADVIL [Concomitant]
     Indication: PAIN
     Route: 065
     Dates: start: 19920101
  19. TYLENOL (CAPLET) [Concomitant]
     Indication: PAIN
     Route: 065
     Dates: start: 20020101
  20. ULTRAM [Concomitant]
     Indication: PAIN
     Route: 065
     Dates: start: 19991101

REACTIONS (24)
  - ABDOMINAL PAIN [None]
  - ANGINA PECTORIS [None]
  - ARTHRALGIA [None]
  - BACK INJURY [None]
  - BLOOD CHOLESTEROL INCREASED [None]
  - BUNION [None]
  - CARDIAC DISORDER [None]
  - CHEST PAIN [None]
  - CORONARY ARTERY OCCLUSION [None]
  - COUGH [None]
  - DIZZINESS [None]
  - GALLBLADDER DISORDER [None]
  - GASTROINTESTINAL DISORDER [None]
  - GASTROOESOPHAGEAL REFLUX DISEASE [None]
  - GRANULOMA [None]
  - HEADACHE [None]
  - HERNIA [None]
  - MYOCARDIAL INFARCTION [None]
  - PAIN [None]
  - PANCREATITIS [None]
  - PNEUMONIA [None]
  - PYREXIA [None]
  - ROAD TRAFFIC ACCIDENT [None]
  - STOMACH DISCOMFORT [None]
